FAERS Safety Report 8696151 (Version 2)
Quarter: 2013Q4

REPORT INFORMATION
  Report Type: Spontaneous
  Country: US (occurrence: US)
  Receive Date: 20120801
  Receipt Date: 20131101
  Transmission Date: 20140711
  Serious: No
  Sender: FDA-Public Use
  Company Number: US-009507513-2012SP033555

PATIENT
  Sex: Female

DRUGS (3)
  1. NEXPLANON [Suspect]
     Dosage: UNK
  2. NEXPLANON [Suspect]
  3. NEXPLANON [Suspect]

REACTIONS (2)
  - Medical device complication [Unknown]
  - No adverse event [Unknown]
